FAERS Safety Report 11528486 (Version 1)
Quarter: 2015Q3

REPORT INFORMATION
  Report Type: Spontaneous
  Country: IT (occurrence: IT)
  Receive Date: 20150921
  Receipt Date: 20150921
  Transmission Date: 20151125
  Serious: Yes (Other)
  Sender: FDA-Public Use
  Company Number: IT-HOSPIRA-3007995

PATIENT
  Age: 64 Year
  Sex: Male

DRUGS (3)
  1. MEROPENEM HOSPIRA [Suspect]
     Active Substance: MEROPENEM
     Indication: BRAIN ABSCESS
     Dosage: DAILY
     Route: 042
     Dates: start: 20150729, end: 20150907
  2. METRONIDAZOLO KABI [Suspect]
     Active Substance: METRONIDAZOLE
     Indication: BRAIN ABSCESS
     Dosage: DAILY
     Route: 042
     Dates: start: 20150729, end: 20150805
  3. VANCOMICINA HIKMA [Suspect]
     Active Substance: VANCOMYCIN HYDROCHLORIDE
     Indication: BRAIN ABSCESS
     Dosage: DAILY
     Route: 042
     Dates: start: 20150729

REACTIONS (2)
  - Hyperamylasaemia [Recovering/Resolving]
  - Hyperlipasaemia [Recovering/Resolving]

NARRATIVE: CASE EVENT DATE: 20150803
